FAERS Safety Report 8481453-9 (Version None)
Quarter: 2012Q3

REPORT INFORMATION
  Report Type: 
  Country: None (occurrence: None)
  Receive Date: 20120702
  Receipt Date: 20120625
  Transmission Date: 20120928
  Serious: Yes (Hospitalization)
  Sender: FDA-Public Use
  Company Number: IN-ASTELLAS-2012JP005907

PATIENT
  Age: 12 Year
  Sex: Female

DRUGS (3)
  1. TACROLIMUS [Suspect]
     Indication: NEPHROTIC SYNDROME
     Dosage: 0.05 MG/KG, BID
     Route: 048
  2. PREDNISOLONE [Suspect]
     Dosage: UNK
     Route: 065
  3. ENALAPRIL MALEATE [Suspect]
     Route: 065

REACTIONS (2)
  - TYPE 1 DIABETES MELLITUS [None]
  - DIABETIC KETOACIDOSIS [None]
